FAERS Safety Report 8152537-X (Version None)
Quarter: 2012Q1

REPORT INFORMATION
  Report Type: 
  Country: None (occurrence: None)
  Receive Date: 20120221
  Receipt Date: 20120209
  Transmission Date: 20120608
  Serious: Yes (Other)
  Sender: FDA-Public Use
  Company Number: CA-BRISTOL-MYERS SQUIBB COMPANY-16396939

PATIENT
  Age: 32 Year
  Sex: Male

DRUGS (1)
  1. ABILIFY [Suspect]
     Dosage: SEVERAL YEARS

REACTIONS (1)
  - GASTRIC BYPASS [None]
